FAERS Safety Report 9644866 (Version 2)
Quarter: 2013Q4

REPORT INFORMATION
  Report Type: Spontaneous
  Country: DE (occurrence: DE)
  Receive Date: 20131025
  Receipt Date: 20131204
  Transmission Date: 20140711
  Serious: Yes (Hospitalization, Disabling)
  Sender: FDA-Public Use
  Company Number: PHHY2013DE117985

PATIENT
  Sex: Male

DRUGS (1)
  1. TASIGNA [Suspect]
     Indication: CHRONIC MYELOID LEUKAEMIA
     Dosage: 300 MG, BID
     Route: 048
     Dates: start: 20130624, end: 20131018

REACTIONS (2)
  - Bone marrow oedema [Recovering/Resolving]
  - Bone swelling [Recovering/Resolving]
